FAERS Safety Report 25171100 (Version 2)
Quarter: 2025Q2

REPORT INFORMATION
  Report Type: Spontaneous
  Country: US (occurrence: US)
  Receive Date: 20250408
  Receipt Date: 20250424
  Transmission Date: 20250716
  Serious: Yes (Hospitalization)
  Sender: TEVA
  Company Number: US-TEVA-VS-3317532

PATIENT
  Age: 30 Year
  Sex: Female

DRUGS (7)
  1. PROPOFOL [Suspect]
     Active Substance: PROPOFOL
     Indication: Induction and maintenance of anaesthesia
     Dosage: GRADUALLY REDUCED BY 74MINS OF SURGERY
     Route: 050
  2. PROPOFOL [Suspect]
     Active Substance: PROPOFOL
     Indication: Induction and maintenance of anaesthesia
     Route: 050
  3. PROPOFOL [Suspect]
     Active Substance: PROPOFOL
     Indication: Induction and maintenance of anaesthesia
     Route: 050
  4. LIDOCAINE HYDROCHLORIDE [Concomitant]
     Active Substance: LIDOCAINE HYDROCHLORIDE
     Indication: Maintenance of anaesthesia
     Route: 065
  5. REMIFENTANIL [Concomitant]
     Active Substance: REMIFENTANIL
     Indication: Maintenance of anaesthesia
     Route: 065
  6. FENTANYL [Concomitant]
     Active Substance: FENTANYL
     Indication: Pain management
     Route: 008
  7. ROCURONIUM [Concomitant]
     Active Substance: ROCURONIUM BROMIDE
     Indication: Muscle relaxant therapy
     Route: 065

REACTIONS (1)
  - Electroencephalogram abnormal [Recovered/Resolved]
